FAERS Safety Report 9909483 (Version 2)
Quarter: 2014Q1

REPORT INFORMATION
  Report Type: Spontaneous
  Country: US (occurrence: US)
  Receive Date: 20140219
  Receipt Date: 20140219
  Transmission Date: 20141002
  Serious: No
  Sender: FDA-Public Use
  Company Number: US-GILEAD-2012-0056161

PATIENT
  Age: 47 Year
  Sex: Female

DRUGS (3)
  1. LETAIRIS [Suspect]
     Indication: PULMONARY HYPERTENSION
     Dosage: 10 MG, UNK
     Route: 048
     Dates: start: 20120322, end: 20120515
  2. LETAIRIS [Suspect]
     Indication: SCLERODERMA
  3. DILANTIN                           /00017401/ [Concomitant]

REACTIONS (2)
  - Drug level above therapeutic [Not Recovered/Not Resolved]
  - Fluid retention [Not Recovered/Not Resolved]
